FAERS Safety Report 14380969 (Version 2)
Quarter: 2018Q1

REPORT INFORMATION
  Report Type: Spontaneous
  Country: GB (occurrence: FR)
  Receive Date: 20180112
  Receipt Date: 20180321
  Transmission Date: 20180509
  Serious: Yes (Hospitalization)
  Sender: FDA-Public Use
  Company Number: FR-FRESENIUS KABI-FK201800320

PATIENT
  Age: 78 Year
  Sex: Female
  Weight: 65 kg

DRUGS (1)
  1. CARBOPLATIN (MANUFACTURER UNKNOWN) [Suspect]
     Active Substance: CARBOPLATIN
     Indication: BREAST CANCER
     Route: 041
     Dates: start: 201209, end: 201302

REACTIONS (3)
  - Dyspnoea [Recovered/Resolved]
  - Skin reaction [Recovered/Resolved]
  - Nervous system disorder [Recovered/Resolved]

NARRATIVE: CASE EVENT DATE: 201302
